FAERS Safety Report 10016841 (Version 3)
Quarter: 2014Q2

REPORT INFORMATION
  Report Type: Spontaneous
  Country: US (occurrence: US)
  Receive Date: 20140318
  Receipt Date: 20140502
  Transmission Date: 20141212
  Serious: No
  Sender: FDA-Public Use
  Company Number: US-009507513-1403USA006968

PATIENT
  Age: 76 Year
  Sex: Male
  Weight: 129.71 kg

DRUGS (17)
  1. JANUMET [Suspect]
     Indication: TYPE 2 DIABETES MELLITUS
     Dosage: ONE (50/500 MG) TWICE DAILY
     Route: 048
     Dates: start: 20100207, end: 2012
  2. JANUMET [Suspect]
     Dosage: ONE (50/1000 MG) TWICE DAILY
     Route: 048
     Dates: start: 2012, end: 20131101
  3. JANUMET [Suspect]
     Dosage: ONE (50/500 MG) TWICE DAILY WITH MEALS
     Dates: start: 2014
  4. COREG CR [Concomitant]
     Dosage: 1 CAPSULE WITH FOOD ONCE A DAY
     Route: 048
  5. NIASPAN [Concomitant]
     Dosage: ONE 500MG TABLET AT BEDTIME
     Route: 048
  6. VYTORIN [Concomitant]
     Indication: BLOOD CHOLESTEROL INCREASED
     Dosage: 1 TABLET BEDTIME
     Route: 048
     Dates: start: 20070618
  7. PANTOPRAZOLE [Concomitant]
     Dosage: 40 MG, QD
     Route: 048
     Dates: end: 20131126
  8. AMIODARONE [Concomitant]
     Dosage: 100 MG, QD
     Route: 048
     Dates: end: 20131126
  9. EPLERENONE [Concomitant]
     Dosage: 25 MG, QD
     Route: 048
  10. VITAMIN B COMPLEX [Concomitant]
     Dosage: AS DIRECTED EVERY DAY
  11. ASPIRIN [Concomitant]
     Dosage: 81 MG, QD
     Route: 048
  12. FOLIC ACID [Concomitant]
     Dosage: 800 MICROGRAM, QD
     Route: 048
  13. OMEGA-3 MARINE TRIGLYCERIDES [Concomitant]
     Dosage: 2000MG, QD
     Route: 048
  14. LEVOFLOXACIN [Concomitant]
     Dosage: 500 MG, QD
     Route: 048
     Dates: end: 20131125
  15. VIAGRA [Concomitant]
     Dosage: 100 MG, PRN
     Route: 048
  16. LYRICA [Concomitant]
     Dosage: 75 MG, QPM
     Route: 048
  17. BUMETANIDE [Concomitant]
     Dosage: 0.5 MG, QD
     Route: 048

REACTIONS (5)
  - Drug ineffective [Not Recovered/Not Resolved]
  - Oedema peripheral [Unknown]
  - Diabetes mellitus inadequate control [Unknown]
  - Hyperglycaemia [Unknown]
  - Central obesity [Unknown]
